FAERS Safety Report 8530226-7 (Version None)
Quarter: 2012Q3

REPORT INFORMATION
  Report Type: 
  Country: None (occurrence: None)
  Receive Date: 20120723
  Receipt Date: 20120720
  Transmission Date: 20120928
  Serious: Yes (Death, Other)
  Sender: FDA-Public Use
  Company Number: PHFR2012GB003465

PATIENT
  Sex: Male

DRUGS (9)
  1. ANTIHYPERTENSIVES [Concomitant]
     Dosage: UNK UKN, UNK
  2. HYOSCINE HYDROBROMIDE [Concomitant]
     Dosage: 300 UG, DAILY
     Route: 048
  3. RAMIPRIL [Concomitant]
     Indication: BLOOD PRESSURE
     Dosage: 2.5 MG, DAILY
     Route: 048
  4. ATORVASTATIN [Concomitant]
     Indication: BLOOD CHOLESTEROL
     Dosage: 20 MG, DAILY
     Route: 048
  5. NICORANDIL [Concomitant]
     Indication: BLOOD PRESSURE
     Dosage: 10 MG, DAILY
     Route: 048
  6. SERTRALINE HYDROCHLORIDE [Concomitant]
     Indication: DEPRESSION
     Dosage: 50 MG, DAILY
     Route: 048
  7. CLOZARIL [Suspect]
     Indication: SCHIZOPHRENIA
     Dosage: 400 MG, (150 AM, 250 MG NOCTE)
     Route: 048
     Dates: start: 20020129
  8. BISOPROLOL FUMARATE [Concomitant]
     Indication: BLOOD PRESSURE
     Dosage: 2.5 MG, DAILY
     Route: 048
  9. ASPIRIN [Concomitant]
     Dosage: 75 MG, DAILY
     Route: 048

REACTIONS (9)
  - ARTERIOSCLEROSIS CORONARY ARTERY [None]
  - HEAD INJURY [None]
  - AORTIC ANEURYSM [None]
  - WEIGHT INCREASED [None]
  - CHEST PAIN [None]
  - CARDIAC DISORDER [None]
  - FALL [None]
  - ACUTE MYOCARDIAL INFARCTION [None]
  - LOSS OF CONSCIOUSNESS [None]
